FAERS Safety Report 6718461-1 (Version None)
Quarter: 2010Q2

REPORT INFORMATION
  Report Type: 
  Country: None (occurrence: None)
  Receive Date: 20100510
  Receipt Date: 20100222
  Transmission Date: 20101027
  Serious: Yes (Other)
  Sender: FDA-Public Use
  Company Number: PHHY2010AT27770

PATIENT
  Age: 74 Year
  Sex: Male

DRUGS (2)
  1. CARBIDOPA,ENTACAPONE,LEVODOPA [Suspect]
  2. PRAMIPEXOLE DIHYDROCHLORIDE [Concomitant]

REACTIONS (6)
  - DYSKINESIA [None]
  - HYPOKINESIA [None]
  - MOOD SWINGS [None]
  - ON AND OFF PHENOMENON [None]
  - PATHOLOGICAL GAMBLING [None]
  - STEREOTYPY [None]
